FAERS Safety Report 16188935 (Version 4)
Quarter: 2019Q2

REPORT INFORMATION
  Report Type: Report from Study
  Country: None (occurrence: FR)
  Receive Date: 20190412
  Receipt Date: 20190520
  Transmission Date: 20190711
  Serious: Yes (Hospitalization)
  Sender: FDA-Public Use
  Company Number: FR-ABBVIE-16K-056-1690179-00

PATIENT
  Age: 58 Year
  Sex: Male

DRUGS (15)
  1. DUODOPA [Suspect]
     Active Substance: CARBIDOPA\LEVODOPA
     Indication: PARKINSON^S DISEASE
     Dosage: EQUIVALENT DOPA DOSE 135 ML PUMP RATE FLOW 9.4 ML/H WITH 15 ML BOLUS
     Route: 050
     Dates: start: 20150427
  2. SINEMET [Concomitant]
     Active Substance: CARBIDOPA\LEVODOPA
     Indication: PARKINSON^S DISEASE
  3. MANTADIX [Concomitant]
     Active Substance: AMANTADINE HYDROCHLORIDE
     Indication: PRODUCT USED FOR UNKNOWN INDICATION
  4. MODOPAR [Concomitant]
     Active Substance: BENSERAZIDE HYDROCHLORIDE\LEVODOPA
     Indication: PRODUCT USED FOR UNKNOWN INDICATION
  5. DUODOPA [Suspect]
     Active Substance: CARBIDOPA\LEVODOPA
     Dosage: PUMP RATE FLOW 10.4 ML/H WITH A BOLUS OF 2 ML
     Route: 050
  6. PREVISCAN [Concomitant]
     Indication: PRODUCT USED FOR UNKNOWN INDICATION
  7. ACARBOSE. [Concomitant]
     Active Substance: ACARBOSE
     Indication: PRODUCT USED FOR UNKNOWN INDICATION
  8. INEXIUM [Concomitant]
     Active Substance: ESOMEPRAZOLE
     Indication: PRODUCT USED FOR UNKNOWN INDICATION
  9. ENOXAPARIN [Concomitant]
     Active Substance: ENOXAPARIN
     Indication: PRODUCT USED FOR UNKNOWN INDICATION
  10. RIVOTRIL [Concomitant]
     Active Substance: CLONAZEPAM
     Indication: PRODUCT USED FOR UNKNOWN INDICATION
  11. TRAMADOL + ACETAMINOFEN [Concomitant]
     Active Substance: ACETAMINOPHEN\TRAMADOL
     Indication: PRODUCT USED FOR UNKNOWN INDICATION
  12. FOLIC ACID. [Concomitant]
     Active Substance: FOLIC ACID
     Indication: PRODUCT USED FOR UNKNOWN INDICATION
  13. VITAMIN B12 [Concomitant]
     Active Substance: CYANOCOBALAMIN
     Indication: PRODUCT USED FOR UNKNOWN INDICATION
  14. NEUPRO [Concomitant]
     Active Substance: ROTIGOTINE
     Indication: PRODUCT USED FOR UNKNOWN INDICATION
  15. DECONTRACTYL [Concomitant]
     Indication: PRODUCT USED FOR UNKNOWN INDICATION

REACTIONS (27)
  - Hyperhidrosis [Unknown]
  - Nosocomial infection [Recovered/Resolved]
  - Parkinson^s disease [Recovered/Resolved]
  - Parkinson^s disease [Recovered/Resolved]
  - Device material issue [Unknown]
  - Akinesia [Unknown]
  - Freezing phenomenon [Not Recovered/Not Resolved]
  - Nightmare [Unknown]
  - Staphylococcal infection [Recovered/Resolved]
  - Diarrhoea [Recovered/Resolved]
  - Gastrointestinal stoma complication [Unknown]
  - Gastritis [Unknown]
  - Parkinson^s disease [Recovered/Resolved]
  - Device occlusion [Unknown]
  - Nocturia [Unknown]
  - Stoma site infection [Not Recovered/Not Resolved]
  - Stoma site infection [Recovered/Resolved]
  - Restlessness [Unknown]
  - Stoma site irritation [Unknown]
  - Dysarthria [Not Recovered/Not Resolved]
  - Intertrigo [Recovered/Resolved]
  - Injury associated with device [Unknown]
  - Dyskinesia [Recovered/Resolved]
  - Dysphagia [Unknown]
  - Device dislocation [Unknown]
  - Dysuria [Unknown]
  - Constipation [Unknown]

NARRATIVE: CASE EVENT DATE: 20150515
